FAERS Safety Report 4597089-6 (Version None)
Quarter: 2005Q1

REPORT INFORMATION
  Report Type: 
  Country: None (occurrence: None)
  Receive Date: 20050302
  Receipt Date: 20050107
  Transmission Date: 20050727
  Serious: Yes (Life-Threatening, Hospitalization, Disabling)
  Sender: FDA-Public Use
  Company Number: US-MERCK-0501USA00710

PATIENT
  Age: 69 Year
  Sex: Female

DRUGS (9)
  1. VIOXX [Suspect]
     Indication: ARTHRITIS
     Route: 048
     Dates: start: 19990101, end: 20040901
  2. SYNTHROID [Concomitant]
     Route: 065
  3. [THERAPY UNSPECIFIED] [Concomitant]
     Indication: BLOOD PRESSURE
     Route: 065
  4. KEPPRA [Concomitant]
     Route: 065
  5. DEPAKOTE [Concomitant]
     Route: 065
  6. ARICEPT [Concomitant]
     Route: 065
  7. ZYPREXA [Concomitant]
     Route: 065
  8. ALLEGRA [Concomitant]
     Route: 065
  9. DIURETIC (UNSPECIFIED) [Concomitant]
     Route: 065

REACTIONS (1)
  - THROMBOSIS [None]
